FAERS Safety Report 8117282-5 (Version None)
Quarter: 2012Q1

REPORT INFORMATION
  Report Type: 
  Country: None (occurrence: None)
  Receive Date: 20120206
  Receipt Date: 20120126
  Transmission Date: 20120608
  Serious: Yes (Hospitalization, Other)
  Sender: FDA-Public Use
  Company Number: US-ASTRAZENECA-2011SE25882

PATIENT
  Age: 58 Year
  Sex: Female
  Weight: 68.9 kg

DRUGS (25)
  1. LANTUS [Concomitant]
     Indication: DIABETES MELLITUS
  2. COUMADIN [Concomitant]
     Indication: THROMBOSIS
  3. ZONEX [Concomitant]
  4. NEXIUM [Suspect]
     Indication: OESOPHAGEAL DISORDER
     Route: 048
  5. IMITREX [Concomitant]
  6. HYDROCODONE BITARTRATE [Concomitant]
     Indication: PAIN
     Dosage: 10/325 DAILY
  7. KLONOPIN [Concomitant]
     Indication: RESTLESS LEGS SYNDROME
  8. SEROQUEL XR [Suspect]
     Route: 048
     Dates: start: 20110501, end: 20110901
  9. SEROQUEL XR [Suspect]
     Route: 048
  10. PAIN PILLS [Concomitant]
     Indication: PAIN
     Dosage: 5 MG EVERY 4-6 HOUR
     Route: 048
  11. SEROQUEL XR [Suspect]
     Route: 048
  12. TRAZODONE HCL [Concomitant]
  13. COUMADIN [Concomitant]
     Indication: CARDIAC DISORDER
  14. SYNTHROID [Concomitant]
     Indication: THYROID DISORDER
  15. 2 MUSCLE RELAXANTS [Concomitant]
  16. PHENAZOPYRIDINE HCL TAB [Concomitant]
     Indication: BLADDER DISORDER
  17. SEROQUEL XR [Suspect]
     Indication: PSYCHOTIC DISORDER
     Route: 048
     Dates: start: 20090101, end: 20110428
  18. IMODIUM [Concomitant]
  19. CYCLOBENZAPR [Concomitant]
     Indication: MUSCLE RELAXANT THERAPY
  20. TRANSIDONE [Concomitant]
  21. NEXIUM [Suspect]
     Indication: HIATUS HERNIA
     Route: 048
  22. SEROQUEL XR [Suspect]
     Indication: BIPOLAR DISORDER
     Route: 048
     Dates: start: 20090101, end: 20110428
  23. SEROQUEL XR [Suspect]
     Route: 048
     Dates: start: 20110501, end: 20110901
  24. HYDROCORTISONE [Concomitant]
     Indication: ADRENAL DISORDER
  25. DYE HDNA ZOPYRID [Concomitant]

REACTIONS (13)
  - ROAD TRAFFIC ACCIDENT [None]
  - AGITATION [None]
  - DEPRESSION [None]
  - SOMNAMBULISM [None]
  - EMOTIONAL DISTRESS [None]
  - PSYCHOTIC DISORDER [None]
  - DRUG DOSE OMISSION [None]
  - LIGAMENT RUPTURE [None]
  - SUICIDAL IDEATION [None]
  - HALLUCINATION [None]
  - SCREAMING [None]
  - GASTROOESOPHAGEAL REFLUX DISEASE [None]
  - DISORIENTATION [None]
